FAERS Safety Report 11650589 (Version 1)
Quarter: 2015Q4

REPORT INFORMATION
  Report Type: Spontaneous
  Country: US (occurrence: US)
  Receive Date: 20151021
  Receipt Date: 20151021
  Transmission Date: 20160304
  Serious: No
  Sender: FDA-Public Use
  Company Number: US-NOVOPROD-437124

PATIENT
  Age: 78 Year
  Sex: Female

DRUGS (2)
  1. VAGIFEM LD [Suspect]
     Active Substance: ESTRADIOL
     Indication: URINARY INCONTINENCE
     Route: 067
  2. VAGIFEM LD [Suspect]
     Active Substance: ESTRADIOL
     Indication: VULVOVAGINAL DRYNESS

REACTIONS (3)
  - Drug dose omission [Recovered/Resolved]
  - Urinary incontinence [Recovered/Resolved]
  - Urinary tract infection [Unknown]
